FAERS Safety Report 6733029-9 (Version None)
Quarter: 2010Q2

REPORT INFORMATION
  Report Type: 
  Country: None (occurrence: None)
  Receive Date: 20100519
  Receipt Date: 20100508
  Transmission Date: 20101027
  Serious: Yes (Other)
  Sender: FDA-Public Use
  Company Number: US-JNJFOC-20100505083

PATIENT
  Age: 5 Year
  Sex: Female
  Weight: 18.14 kg

DRUGS (4)
  1. CHILDREN'S TYLENOL SUSPENSION [Suspect]
     Indication: PYREXIA
     Route: 048
  2. CHILDREN'S TYLENOL SUSPENSION [Suspect]
     Indication: MALAISE
     Route: 048
  3. CHILDREN'S BENADRYL ALLERGY [Suspect]
     Indication: PYREXIA
     Route: 048
  4. CHILDREN'S BENADRYL ALLERGY [Suspect]
     Indication: MALAISE
     Route: 048

REACTIONS (4)
  - HYPERSOMNIA [None]
  - PRODUCT MEASURED POTENCY ISSUE [None]
  - PYREXIA [None]
  - SOMNOLENCE [None]
